FAERS Safety Report 8849233 (Version 2)
Quarter: 2012Q4

REPORT INFORMATION
  Report Type: 
  Country: BR (occurrence: BR)
  Receive Date: 20121019
  Receipt Date: 20121031
  Transmission Date: 20130627
  Serious: Yes (Other)
  Sender: FDA-Public Use
  Company Number: BR-JNJFOC-20121006879

PATIENT
  Sex: Female
  Weight: 56 kg

DRUGS (7)
  1. REMICADE [Suspect]
     Indication: RHEUMATOID ARTHRITIS
     Route: 042
     Dates: start: 201208
  2. REMICADE [Suspect]
     Indication: RHEUMATOID ARTHRITIS
     Route: 042
     Dates: start: 201206, end: 201208
  3. REMICADE [Suspect]
     Indication: RHEUMATOID ARTHRITIS
     Route: 042
     Dates: start: 2010
  4. METHOTREXATE [Concomitant]
     Indication: ARTHRALGIA
     Route: 065
     Dates: start: 2010
  5. OMEPRAZOLE [Concomitant]
     Indication: GASTROINTESTINAL DISORDER THERAPY
     Route: 065
     Dates: start: 2010
  6. PARACETAMOL [Concomitant]
     Indication: ARTHRALGIA
     Route: 065
     Dates: start: 2010
  7. DICLOFENAC SODIUM [Concomitant]
     Indication: INFLAMMATORY PAIN
     Route: 065
     Dates: start: 2010

REACTIONS (6)
  - Drug ineffective [Not Recovered/Not Resolved]
  - Infusion related reaction [Recovering/Resolving]
  - Dyspnoea [Recovering/Resolving]
  - Sensory disturbance [Recovering/Resolving]
  - Anaemia [Not Recovered/Not Resolved]
  - Hypersensitivity [Recovering/Resolving]
